FAERS Safety Report 18126435 (Version 1)
Quarter: 2020Q3

REPORT INFORMATION
  Report Type: Report from Study
  Country: DE (occurrence: DE)
  Receive Date: 20200808
  Receipt Date: 20200808
  Transmission Date: 20201103
  Serious: Yes (Other)
  Sender: FDA-Public Use
  Company Number: NVSC2020DE112713

PATIENT
  Sex: Female

DRUGS (4)
  1. PREDNISOLUT [Concomitant]
     Active Substance: PREDNISOLONE
     Dosage: 1000 OT FIVE TIMES
     Route: 065
     Dates: start: 20200106, end: 20200110
  2. CITALOPRAM [Concomitant]
     Active Substance: CITALOPRAM HYDROBROMIDE
     Indication: DEPRESSION
     Dosage: 10 MG
     Route: 065
     Dates: start: 20200115
  3. PREDNISOLUT [Concomitant]
     Active Substance: PREDNISOLONE
     Indication: MULTIPLE SCLEROSIS RELAPSE
     Dosage: 1000 MG, TID
     Route: 065
     Dates: start: 20190930, end: 20191002
  4. GILENYA [Suspect]
     Active Substance: FINGOLIMOD HYDROCHLORIDE
     Indication: MULTIPLE SCLEROSIS
     Dosage: 0.5 MG, QD
     Route: 048
     Dates: start: 20190114

REACTIONS (3)
  - Lymphopenia [Recovered/Resolved]
  - Hypokalaemia [Unknown]
  - Lymphopenia [Unknown]

NARRATIVE: CASE EVENT DATE: 20200115
